FAERS Safety Report 7508022-9 (Version None)
Quarter: 2011Q2

REPORT INFORMATION
  Report Type: 
  Country: None (occurrence: None)
  Receive Date: 20110527
  Receipt Date: 20110517
  Transmission Date: 20111010
  Serious: Yes (Hospitalization, Other)
  Sender: FDA-Public Use
  Company Number: US-ELI_LILLY_AND_COMPANY-US201103002783

PATIENT
  Age: 76 Year
  Sex: Female

DRUGS (10)
  1. OMEPRAZOLE [Concomitant]
  2. METOPROLOL TARTRATE [Concomitant]
     Indication: HYPERTENSION
  3. HYDROCHLOROTHIAZIDE [Concomitant]
  4. AMITRIPTYLINE HCL [Concomitant]
  5. VITAMIN D [Concomitant]
  6. FORTEO [Suspect]
     Indication: OSTEOPOROSIS
     Dosage: 20 UG, DAILY (1/D)
     Dates: end: 20110303
  7. SIMVASTATIN [Concomitant]
     Indication: BLOOD CHOLESTEROL
  8. LEVOTHYROXINE SODIUM [Concomitant]
     Indication: THYROID DISORDER
  9. VITAMIN B-12 [Concomitant]
  10. PRESERVISION LUTEIN EYE VITA.+MIN.SUP.SOFTG. [Concomitant]
     Indication: MACULAR DEGENERATION

REACTIONS (1)
  - ATRIAL FIBRILLATION [None]
